FAERS Safety Report 17079925 (Version 3)
Quarter: 2019Q4

REPORT INFORMATION
  Report Type: Report from Study
  Country: None (occurrence: TR)
  Receive Date: 20191127
  Receipt Date: 20191219
  Transmission Date: 20200122
  Serious: Yes (Death, Hospitalization)
  Sender: FDA-Public Use
  Company Number: TR-ABBVIE-19K-161-3168360-00

PATIENT
  Age: 63 Year
  Sex: Female
  Weight: 60 kg

DRUGS (2)
  1. DUODOPA [Suspect]
     Active Substance: CARBIDOPA\LEVODOPA
     Indication: PARKINSON^S DISEASE
     Dosage: MORNING DOSE (ML): 7.50 CONTINUOUS DOSE (ML): 3.90 EXTRA DOSE (ML): 1.00
     Route: 050
     Dates: start: 20190416
  2. KETYA [Concomitant]
     Indication: DEPRESSION
     Route: 048
     Dates: start: 201911

REACTIONS (2)
  - Pulmonary embolism [Recovered/Resolved]
  - Cardiac arrest [Fatal]

NARRATIVE: CASE EVENT DATE: 20191122
